FAERS Safety Report 16079033 (Version 2)
Quarter: 2019Q1

REPORT INFORMATION
  Report Type: Report from Study
  Country: MX (occurrence: MX)
  Receive Date: 20190315
  Receipt Date: 20190315
  Transmission Date: 20190418
  Serious: Yes (Life-Threatening, Hospitalization, Other)
  Sender: FDA-Public Use
  Company Number: PHHY2019MX058764

PATIENT
  Sex: Female
  Weight: 50 kg

DRUGS (6)
  1. EXELON PATCH [Suspect]
     Active Substance: RIVASTIGMINE
     Indication: DEMENTIA
     Dosage: 9.5 MG, Q24H PATCH 10 (CM2)
     Route: 062
     Dates: start: 201902
  2. SERTRALINE [Suspect]
     Active Substance: SERTRALINE HYDROCHLORIDE
     Indication: DEPRESSION
     Dosage: 1 DF, QD
     Route: 048
  3. MEMANTINE. [Suspect]
     Active Substance: MEMANTINE
     Indication: PRODUCT USED FOR UNKNOWN INDICATION
     Dosage: 1 DF, Q24H
     Route: 048
     Dates: start: 20190113
  4. SERTRALINE [Suspect]
     Active Substance: SERTRALINE HYDROCHLORIDE
     Dosage: 1 DF, BID
     Route: 048
  5. RISPERIDONE. [Suspect]
     Active Substance: RISPERIDONE
     Indication: SLEEP DISORDER
     Dosage: 0.5 DF, QD
     Route: 048
     Dates: start: 201901
  6. AKATINOL [Concomitant]
     Indication: NEURODEGENERATIVE DISORDER
     Route: 065

REACTIONS (6)
  - Suicide attempt [Recovering/Resolving]
  - Depression [Unknown]
  - Memory impairment [Unknown]
  - Confusional state [Unknown]
  - Insomnia [Unknown]
  - Wrong technique in product usage process [Unknown]
